FAERS Safety Report 15919255 (Version 1)
Quarter: 2019Q1

REPORT INFORMATION
  Report Type: Spontaneous
  Country: US (occurrence: US)
  Receive Date: 20190205
  Receipt Date: 20190205
  Transmission Date: 20190417
  Serious: No
  Sender: FDA-Public Use
  Company Number: US-ROCHE-2076153

PATIENT
  Sex: Female

DRUGS (14)
  1. MIRALAX [Concomitant]
     Active Substance: POLYETHYLENE GLYCOL 3350
  2. ELIQUIS [Concomitant]
     Active Substance: APIXABAN
  3. XOLAIR [Suspect]
     Active Substance: OMALIZUMAB
     Indication: ASTHMA
     Dosage: ONGOING
     Route: 058
     Dates: start: 20100819
  4. FUROSEMIDE. [Concomitant]
     Active Substance: FUROSEMIDE
  5. COLACE [Concomitant]
     Active Substance: DOCUSATE SODIUM
  6. SIMVASTATIN. [Concomitant]
     Active Substance: SIMVASTATIN
  7. BISOPROL [Concomitant]
     Active Substance: BISOPROLOL FUMARATE
  8. VALIUM [Suspect]
     Active Substance: DIAZEPAM
     Indication: PRODUCT USED FOR UNKNOWN INDICATION
     Route: 065
  9. FLONASE [Concomitant]
     Active Substance: FLUTICASONE PROPIONATE
  10. GLIPIZIDE. [Concomitant]
     Active Substance: GLIPIZIDE
  11. METOLAZONE. [Concomitant]
     Active Substance: METOLAZONE
  12. SINGULAIR [Concomitant]
     Active Substance: MONTELUKAST SODIUM
  13. BENEFIBER [Concomitant]
     Active Substance: STARCH, WHEAT
  14. ROBINUL [Concomitant]
     Active Substance: GLYCOPYRROLATE

REACTIONS (1)
  - Drug hypersensitivity [Unknown]
